FAERS Safety Report 23151964 (Version 1)
Quarter: 2023Q4

REPORT INFORMATION
  Report Type: Spontaneous
  Country: US (occurrence: US)
  Receive Date: 20231107
  Receipt Date: 20231107
  Transmission Date: 20240110
  Serious: No
  Sender: FDA-Public Use
  Company Number: US-ABBVIE-5484118

PATIENT
  Sex: Male

DRUGS (1)
  1. DIVALPROEX SODIUM [Suspect]
     Active Substance: DIVALPROEX SODIUM
     Indication: Mania
     Dosage: DELAYED RELEASED
     Route: 048

REACTIONS (3)
  - Night sweats [Unknown]
  - Tremor [Unknown]
  - Anxiety [Unknown]
